FAERS Safety Report 24304533 (Version 1)
Quarter: 2024Q3

REPORT INFORMATION
  Report Type: Spontaneous
  Country: US (occurrence: US)
  Receive Date: 20240910
  Receipt Date: 20240910
  Transmission Date: 20241016
  Serious: Yes (Hospitalization)
  Sender: FRESENIUS MEDICAL CARE
  Company Number: US-FMCRTG-FMC-2408-000961

PATIENT
  Age: 84 Year
  Sex: Female
  Weight: 80.9 kg

DRUGS (1)
  1. DELFLEX WITH DEXTROSE 2.5% LOW MAGNESIUM LOW CALCIUM [Suspect]
     Active Substance: CALCIUM CHLORIDE\DEXTROSE\MAGNESIUM CHLORIDE\SODIUM CHLORIDE\SODIUM LACTATE
     Indication: End stage renal disease
     Dosage: 2500 ML FOR 5 CYCLES WITH A LAST FILL OF 1000 ML
     Route: 033

REACTIONS (1)
  - Peritonitis bacterial [Unknown]

NARRATIVE: CASE EVENT DATE: 20240723
